FAERS Safety Report 8521596-4 (Version None)
Quarter: 2012Q3

REPORT INFORMATION
  Report Type: 
  Country: None (occurrence: None)
  Receive Date: 20120719
  Receipt Date: 20120716
  Transmission Date: 20120928
  Serious: Yes (Hospitalization, Other)
  Sender: FDA-Public Use
  Company Number: PHEH2012US010339

PATIENT
  Sex: Female

DRUGS (7)
  1. CALCIUM [Concomitant]
     Dosage: UNK UKN, UNK
  2. METOPROLOL SUCCINATE [Concomitant]
     Indication: HYPERTENSION
     Dosage: 25 MG, BID
  3. POTASSIUM CHLORIDE [Concomitant]
     Indication: OEDEMA
     Dosage: 10 MG, BID
  4. FUROSEMIDE [Concomitant]
     Indication: OEDEMA
     Dosage: 20 MG, QD
     Route: 048
  5. NORCO [Concomitant]
     Dosage: UNK UKN, UNK
  6. VITAMINS NOS [Concomitant]
     Dosage: UNK UKN, UNK
  7. DIOVAN [Suspect]
     Indication: HYPERTENSION
     Dosage: 180 MG, QD
     Route: 048
     Dates: start: 20120201

REACTIONS (2)
  - FALL [None]
  - ANKLE FRACTURE [None]
